FAERS Safety Report 21134971 (Version 1)
Quarter: 2022Q3

REPORT INFORMATION
  Report Type: Spontaneous
  Country: CZ (occurrence: CZ)
  Receive Date: 20220727
  Receipt Date: 20220727
  Transmission Date: 20221027
  Serious: Yes (Hospitalization)
  Sender: FDA-Public Use
  Company Number: CZ-CHEPLA-2022006528

PATIENT
  Sex: Male
  Weight: 1.2999 kg

DRUGS (4)
  1. CLONAZEPAM [Suspect]
     Active Substance: CLONAZEPAM
     Route: 064
  2. VALPROIC ACID [Suspect]
     Active Substance: VALPROIC ACID
     Route: 064
  3. PRIMIDONE [Suspect]
     Active Substance: PRIMIDONE
     Route: 064
  4. ZONISAMIDE [Suspect]
     Active Substance: ZONISAMIDE
     Route: 064

REACTIONS (4)
  - Premature baby [Recovered/Resolved]
  - Incubator therapy [Recovered/Resolved]
  - Low birth weight baby [Unknown]
  - Foetal exposure during pregnancy [Unknown]
